FAERS Safety Report 9614335 (Version 3)
Quarter: 2013Q4

REPORT INFORMATION
  Report Type: Spontaneous
  Country: ES (occurrence: ES)
  Receive Date: 20131011
  Receipt Date: 20131011
  Transmission Date: 20140711
  Serious: Yes (Other)
  Sender: FDA-Public Use
  Company Number: ES-JNJFOC-20130715812

PATIENT
  Age: 60 Year
  Sex: Female

DRUGS (4)
  1. SIMPONI [Suspect]
     Indication: RHEUMATOID ARTHRITIS
     Route: 058
     Dates: start: 20130724
  2. SINTROM [Concomitant]
     Route: 048
  3. ZAMENE [Concomitant]
     Route: 048
  4. SOTACOR [Concomitant]
     Route: 048

REACTIONS (4)
  - Tendon rupture [Not Recovered/Not Resolved]
  - Back pain [Recovered/Resolved]
  - Renal pain [Recovered/Resolved]
  - Abdominal pain upper [Recovered/Resolved]
